FAERS Safety Report 8085451-9 (Version None)
Quarter: 2012Q1

REPORT INFORMATION
  Report Type: 
  Country: None (occurrence: None)
  Receive Date: 20120128
  Receipt Date: 20110518
  Transmission Date: 20120608
  Serious: No
  Sender: FDA-Public Use
  Company Number: US-ABBOTT-11P-163-0707029-00

PATIENT
  Age: 32 Year
  Sex: Female

DRUGS (8)
  1. PENTASA [Concomitant]
     Indication: CROHN'S DISEASE
     Dosage: 500 MG - 8 PILLS DAILY
  2. IRON INFUSIONS [Concomitant]
     Indication: ANAEMIA
     Dosage: AS NEEDED
  3. ISOCORT [Concomitant]
     Indication: PRODUCT USED FOR UNKNOWN INDICATION
  4. BIRTH CONTROL PILLS [Concomitant]
     Indication: PRODUCT USED FOR UNKNOWN INDICATION
     Dosage: DAILY
  5. ENDOCORT [Concomitant]
     Indication: CROHN'S DISEASE
     Dosage: 3 MG - 3 PILLS DAILY
  6. HUMIRA [Suspect]
     Indication: CROHN'S DISEASE
     Dates: start: 20110222
  7. TOPROL-XL [Concomitant]
     Indication: TACHYCARDIA
     Dosage: 25 MG DAILY
  8. TOPROL-XL [Concomitant]
     Indication: HEART RATE INCREASED

REACTIONS (4)
  - INJECTION SITE PAIN [None]
  - NASAL CONGESTION [None]
  - RESPIRATORY TRACT CONGESTION [None]
  - COUGH [None]
